FAERS Safety Report 4289070-1 (Version None)
Quarter: 2004Q1

REPORT INFORMATION
  Report Type: 
  Country: None (occurrence: None)
  Receive Date: 20040209
  Receipt Date: 20040202
  Transmission Date: 20041129
  Serious: Yes (Hospitalization)
  Sender: FDA-Public Use
  Company Number: WAES 0402COL00005

PATIENT

DRUGS (2)
  1. VIOXX [Suspect]
  2. WARFARIN [Concomitant]

REACTIONS (1)
  - INTESTINAL HAEMORRHAGE [None]
